FAERS Safety Report 5018999-1 (Version None)
Quarter: 2006Q2

REPORT INFORMATION
  Report Type: 
  Country: None (occurrence: None)
  Receive Date: 20060606
  Receipt Date: 20060310
  Transmission Date: 20061013
  Serious: Yes (Hospitalization)
  Sender: FDA-Public Use
  Company Number: JP-JPN-A200600915

PATIENT
  Age: 57 Year
  Sex: Female

DRUGS (3)
  1. ZOVIRAX [Suspect]
     Indication: HERPES ZOSTER
     Dosage: 250MG TWICE PER DAY
     Route: 042
     Dates: start: 20060220, end: 20060225
  2. VOLTAREN [Suspect]
     Indication: PAIN
     Dosage: 25MG AT NIGHT
     Route: 048
     Dates: start: 20060227, end: 20060227
  3. ZOVIRAX [Concomitant]
     Route: 061
     Dates: start: 20060220, end: 20060220

REACTIONS (5)
  - ERYTHEMA MULTIFORME [None]
  - HEPATIC FUNCTION ABNORMAL [None]
  - POST HERPETIC NEURALGIA [None]
  - RASH [None]
  - RASH ERYTHEMATOUS [None]
